FAERS Safety Report 24033823 (Version 3)
Quarter: 2024Q4

REPORT INFORMATION
  Report Type: Spontaneous
  Country: JP (occurrence: JP)
  Receive Date: 20240701
  Receipt Date: 20241008
  Transmission Date: 20250114
  Serious: Yes (Death, Hospitalization, Other)
  Sender: AMGEN
  Company Number: JP-ONO-2024JP001797

PATIENT
  Age: 62 Year
  Sex: Female
  Weight: 48 kg

DRUGS (17)
  1. KYPROLIS [Suspect]
     Active Substance: CARFILZOMIB
     Indication: Plasma cell myeloma
     Dosage: 100 MG
     Route: 041
     Dates: start: 20230731, end: 20240115
  2. KYPROLIS [Suspect]
     Active Substance: CARFILZOMIB
     Dosage: 100 MG
     Route: 042
     Dates: start: 20240219, end: 20240527
  3. DEXAMETHASONE [Concomitant]
     Active Substance: DEXAMETHASONE
     Indication: Plasma cell myeloma
     Dosage: UNK
     Route: 065
     Dates: end: 20240115
  4. DEXAMETHASONE [Concomitant]
     Active Substance: DEXAMETHASONE
     Dosage: UNK
     Route: 065
     Dates: start: 20240219
  5. Benzalin [Concomitant]
     Dosage: 5 MG, EVERYDAY
     Route: 048
     Dates: end: 20240122
  6. Benzalin [Concomitant]
     Dosage: 5 MG, EVERYDAY
     Route: 048
     Dates: end: 20240528
  7. ETHYL LOFLAZEPATE [Concomitant]
     Active Substance: ETHYL LOFLAZEPATE
     Dosage: 1 MG, EVERYDAY
     Route: 048
     Dates: end: 20240122
  8. ETHYL LOFLAZEPATE [Concomitant]
     Active Substance: ETHYL LOFLAZEPATE
     Dosage: 1 MG, EVERYDAY
     Dates: end: 20240528
  9. LANSOPRAZOLE [Concomitant]
     Active Substance: LANSOPRAZOLE
     Dosage: 15 MG, EVERYDAY
     Route: 048
     Dates: end: 20240122
  10. LANSOPRAZOLE [Concomitant]
     Active Substance: LANSOPRAZOLE
     Dosage: 15 MG, EVERYDAY
     Route: 048
     Dates: end: 20240528
  11. CYMBALTA [Concomitant]
     Active Substance: DULOXETINE HYDROCHLORIDE
     Dosage: 20 MG, EVERYDAY
     Route: 048
     Dates: end: 20240122
  12. CYMBALTA [Concomitant]
     Active Substance: DULOXETINE HYDROCHLORIDE
     Dosage: 20 MG, EVERYDAY
     Route: 048
     Dates: end: 20240528
  13. ALENDRONATE SODIUM [Concomitant]
     Active Substance: ALENDRONATE SODIUM
     Dosage: 5 MG, EVERYDAY
     Route: 048
     Dates: end: 20240122
  14. ALENDRONATE SODIUM [Concomitant]
     Active Substance: ALENDRONATE SODIUM
     Dosage: 5 MG, EVERYDAY
     Route: 048
     Dates: end: 20240528
  15. ALFAROL [Concomitant]
     Active Substance: ALFACALCIDOL
     Dosage: 0.5 UG, EVERYDAY
     Route: 048
     Dates: end: 20240122
  16. ALFAROL [Concomitant]
     Active Substance: ALFACALCIDOL
     Dosage: 0.5 UG, EVERYDAY
     Dates: end: 20240528
  17. AMLODIPINE BESYLATE\TELMISARTAN [Concomitant]
     Active Substance: AMLODIPINE BESYLATE\TELMISARTAN
     Dosage: 1 DF, EVERYDAY
     Route: 048
     Dates: start: 20240203, end: 20240528

REACTIONS (7)
  - Disseminated intravascular coagulation [Fatal]
  - Enterocolitis [Fatal]
  - Acute kidney injury [Fatal]
  - Disseminated intravascular coagulation [Recovered/Resolved]
  - COVID-19 [Recovering/Resolving]
  - Thrombotic microangiopathy [Recovering/Resolving]
  - Hypertension [Not Recovered/Not Resolved]

NARRATIVE: CASE EVENT DATE: 20240122
